FAERS Safety Report 21300126 (Version 1)
Quarter: 2022Q3

REPORT INFORMATION
  Report Type: Spontaneous
  Country: US (occurrence: None)
  Receive Date: 20220906
  Receipt Date: 20220906
  Transmission Date: 20221027
  Serious: Yes (Hospitalization)
  Sender: FDA-Public Use
  Company Number: None

PATIENT
  Age: 63 Year
  Sex: Female

DRUGS (1)
  1. TECFIDERA [Suspect]
     Active Substance: DIMETHYL FUMARATE
     Indication: Multiple sclerosis
     Dosage: 240MG TWICE DAILY BY MOUTH?
     Route: 048
     Dates: start: 20150625

REACTIONS (5)
  - Therapy interrupted [None]
  - Fall [None]
  - Balance disorder [None]
  - Head injury [None]
  - Cardiac failure [None]

NARRATIVE: CASE EVENT DATE: 20220823
